FAERS Safety Report 9880653 (Version 1)
Quarter: 2014Q1

REPORT INFORMATION
  Report Type: Spontaneous
  Country: US (occurrence: None)
  Receive Date: 20140206
  Receipt Date: 20140206
  Transmission Date: 20141002
  Serious: Yes (Other)
  Sender: FDA-Public Use
  Company Number: None

PATIENT
  Age: 64 Year
  Sex: Male
  Weight: 77.11 kg

DRUGS (1)
  1. IPRATROPIUM BROMIDE/ALBUTEROLSULFATE [Suspect]
     Indication: CHRONIC OBSTRUCTIVE PULMONARY DISEASE
     Dosage: 4 A DAY.
     Dates: start: 20131223, end: 20131224

REACTIONS (4)
  - Pharyngeal oedema [None]
  - Chest pain [None]
  - Respiratory disorder [None]
  - Product substitution issue [None]
